FAERS Safety Report 19331368 (Version 5)
Quarter: 2021Q3

REPORT INFORMATION
  Report Type: Report from Study
  Country: US (occurrence: US)
  Receive Date: 20210528
  Receipt Date: 20210925
  Transmission Date: 20211014
  Serious: No
  Sender: FDA-Public Use
  Company Number: NVSC2021US120683

PATIENT
  Sex: Male

DRUGS (2)
  1. COSENTYX [Suspect]
     Active Substance: SECUKINUMAB
     Indication: PSORIASIS
     Dosage: 150 MG, QMO
     Route: 058
  2. COSENTYX [Suspect]
     Active Substance: SECUKINUMAB
     Indication: PSORIASIS

REACTIONS (8)
  - Back pain [Unknown]
  - Drug ineffective [Unknown]
  - Skin exfoliation [Unknown]
  - Skin haemorrhage [Unknown]
  - Sciatica [Unknown]
  - Psoriasis [Unknown]
  - Incorrect dose administered [Unknown]
  - Decreased appetite [Unknown]
